FAERS Safety Report 7693424-0 (Version None)
Quarter: 2011Q3

REPORT INFORMATION
  Report Type: 
  Country: None (occurrence: None)
  Receive Date: 20110819
  Receipt Date: 20110810
  Transmission Date: 20111222
  Serious: Yes (Hospitalization)
  Sender: FDA-Public Use
  Company Number: US-ACTELION-A-US2011-52623

PATIENT

DRUGS (2)
  1. EPOPROSTENOL SODIUM [Suspect]
     Dosage: 25 NG/KG, PER MIN
     Route: 042
     Dates: start: 20110305, end: 20110801
  2. EPOPROSTENOL SODIUM [Suspect]
     Indication: PULMONARY ARTERIAL HYPERTENSION
     Dosage: 24 NG/KG, PER MIN
     Route: 042
     Dates: start: 20110801

REACTIONS (4)
  - HAEMATEMESIS [None]
  - VOMITING [None]
  - NAUSEA [None]
  - GASTRITIS [None]
